FAERS Safety Report 6187407-X (Version None)
Quarter: 2009Q2

REPORT INFORMATION
  Report Type: 
  Country: None (occurrence: None)
  Receive Date: 20090512
  Receipt Date: 20090507
  Transmission Date: 20091009
  Serious: Yes (Death, Hospitalization)
  Sender: FDA-Public Use
  Company Number: AR-NOVOPROD-286555

PATIENT
  Sex: Male

DRUGS (2)
  1. NORDITROPIN NORDIFLEX [Suspect]
     Indication: HAEMODIALYSIS
  2. INSULIN DETEMIR [Concomitant]
     Dosage: 7 U, QD
     Dates: start: 20070130

REACTIONS (1)
  - STAPHYLOCOCCAL BACTERAEMIA [None]
